FAERS Safety Report 26195279 (Version 1)
Quarter: 2025Q4

REPORT INFORMATION
  Report Type: Spontaneous
  Country: US (occurrence: US)
  Receive Date: 20251224
  Receipt Date: 20251224
  Transmission Date: 20260118
  Serious: No
  Sender: Kenvue
  Company Number: US-KENVUE-20251110263

PATIENT
  Sex: Female

DRUGS (15)
  1. LOPERAMIDE HYDROCHLORIDE [Suspect]
     Active Substance: LOPERAMIDE HYDROCHLORIDE
     Indication: Abdominal pain upper
     Dosage: UNK
     Route: 065
  2. LOPERAMIDE HYDROCHLORIDE [Suspect]
     Active Substance: LOPERAMIDE HYDROCHLORIDE
     Indication: Abdominal discomfort
  3. TYLENOL [Suspect]
     Active Substance: ACETAMINOPHEN
     Indication: Headache
     Dosage: UNK
     Route: 065
  4. REMODULIN [Concomitant]
     Active Substance: TREPROSTINIL
     Indication: Pulmonary arterial hypertension
     Dosage: 0.0098 ?G/KG
  5. REMODULIN [Concomitant]
     Active Substance: TREPROSTINIL
     Dosage: UNK [RATE OF 39 ML/24 HR]
  6. REMODULIN [Concomitant]
     Active Substance: TREPROSTINIL
     Dosage: UNK [RATE OF 39 ML/24 HR]
  7. REMODULIN [Concomitant]
     Active Substance: TREPROSTINIL
     Dosage: 0.010 ?G/KG (RATE OF 39 ML/24 HR)
  8. REMODULIN [Concomitant]
     Active Substance: TREPROSTINIL
     Dosage: UNK
  9. REMODULIN [Concomitant]
     Active Substance: TREPROSTINIL
     Dosage: UNK
  10. REMODULIN [Concomitant]
     Active Substance: TREPROSTINIL
     Dosage: 0.02574 ?G/KG (AT THE PUMP RATE 21 MCL/HR)
  11. REMODULIN [Concomitant]
     Active Substance: TREPROSTINIL
     Dosage: UNK (20)
  12. REMODULIN [Concomitant]
     Active Substance: TREPROSTINIL
     Dosage: UNK
  13. REMODULIN [Concomitant]
     Active Substance: TREPROSTINIL
     Dosage: UNK
  14. TYVASO [Concomitant]
     Active Substance: TREPROSTINIL
     Indication: Pulmonary arterial hypertension
     Dosage: 72 ?G, QID
  15. TYVASO [Concomitant]
     Active Substance: TREPROSTINIL
     Dosage: UNK

REACTIONS (1)
  - Drug ineffective [Unknown]

NARRATIVE: CASE EVENT DATE: 20250101
